FAERS Safety Report 7658734-1 (Version None)
Quarter: 2011Q3

REPORT INFORMATION
  Report Type: 
  Country: None (occurrence: None)
  Receive Date: 20110802
  Receipt Date: 20110725
  Transmission Date: 20111222
  Serious: Yes (Hospitalization, Other)
  Sender: FDA-Public Use
  Company Number: 1000022438

PATIENT
  Sex: Female

DRUGS (10)
  1. ASPIRIN [Suspect]
     Dosage: 81 MG (81 MG)
     Dates: start: 20070101
  2. CELEXA [Suspect]
     Indication: DEPRESSION
     Dosage: 10 MG (10 MG)
     Dates: start: 20090101
  3. VICODIN [Suspect]
     Indication: PAIN
     Dosage: 750 MG (750 MG)
     Dates: start: 20070101
  4. MOTRIN [Suspect]
     Indication: PAIN
     Dosage: 800 MG 3-4 TIMES PER DAY (3-4 TIMES PER DAY
     Dates: start: 20070101
  5. XANAX [Suspect]
     Indication: SLEEP DISORDER THERAPY
     Dosage: 20 MG (10 MG, 2 IN 1 D)
     Dates: start: 20090101
  6. XANAX [Suspect]
     Indication: PAIN
     Dosage: 20 MG (10 MG, 2 IN 1 D)
     Dates: start: 20090101
  7. XANAX [Suspect]
     Indication: NERVOUSNESS
     Dosage: 20 MG (10 MG, 2 IN 1 D)
     Dates: start: 20090101
  8. LISINOPRIL AND WATER PILL (NOS)(LISINOPRIL, WATER PILL (NOS)) [Suspect]
     Indication: BLOOD PRESSURE
     Dosage: 10/12.5 MG
     Dates: start: 20070101
  9. LYRICA [Suspect]
     Indication: FIBROMYALGIA
     Dosage: 150 MG (75 MG, 2 IN 1 D)
  10. SOMA [Suspect]
     Indication: PAIN
     Dosage: 350 MG (350 MG)
     Dates: start: 20070101

REACTIONS (7)
  - ACCIDENT [None]
  - H1N1 INFLUENZA [None]
  - GAIT DISTURBANCE [None]
  - TRANSIENT ISCHAEMIC ATTACK [None]
  - FALL [None]
  - PAIN [None]
  - GASTRIC DISORDER [None]
